FAERS Safety Report 5428004-0 (Version None)
Quarter: 2007Q3

REPORT INFORMATION
  Report Type: 
  Country: None (occurrence: None)
  Receive Date: 20070828
  Receipt Date: 20070821
  Transmission Date: 20080115
  Serious: Yes (Other)
  Sender: FDA-Public Use
  Company Number: US-SANOFI-SYNTHELABO-A03200705199

PATIENT
  Sex: Female

DRUGS (11)
  1. AMBIEN CR [Suspect]
     Indication: INSOMNIA
     Route: 048
     Dates: start: 20070811, end: 20070818
  2. CALCIUM [Concomitant]
     Dosage: UNK
     Route: 048
  3. ASPIRIN [Concomitant]
     Route: 048
  4. LOPID [Concomitant]
     Dosage: UNK
     Route: 048
  5. RELPAX [Concomitant]
     Dosage: UNK
     Route: 048
  6. TOPAMAX [Concomitant]
     Dosage: UNK
     Route: 048
  7. LIOTRIX (T4;T3) [Concomitant]
     Dosage: UNK
     Route: 048
  8. MONTELUKAST SODIUM [Concomitant]
     Dosage: UNK
     Route: 048
  9. FLOVENT [Concomitant]
     Dosage: UNK
     Route: 055
  10. SPIRIVA [Concomitant]
     Dosage: UNK
     Route: 055
  11. VERAPAMIL [Concomitant]
     Route: 048

REACTIONS (3)
  - HAEMORRHAGE [None]
  - HALLUCINATION, VISUAL [None]
  - SELF INJURIOUS BEHAVIOUR [None]
